FAERS Safety Report 21325502 (Version 1)
Quarter: 2022Q3

REPORT INFORMATION
  Report Type: Spontaneous
  Country: US (occurrence: US)
  Receive Date: 20220912
  Receipt Date: 20220912
  Transmission Date: 20221027
  Serious: Yes (Hospitalization)
  Sender: FDA-Public Use
  Company Number: US-BIOVITRUM-2022US07104

PATIENT
  Sex: Female
  Weight: 8 kg

DRUGS (9)
  1. SYNAGIS [Suspect]
     Active Substance: PALIVIZUMAB
     Indication: Postoperative care
     Route: 030
     Dates: start: 202202
  2. SYNAGIS [Suspect]
     Active Substance: PALIVIZUMAB
     Indication: Atrial septal defect
     Route: 030
     Dates: start: 202202
  3. SYNAGIS [Suspect]
     Active Substance: PALIVIZUMAB
     Indication: Antiviral prophylaxis
     Route: 030
     Dates: start: 202202
  4. SYNAGIS [Suspect]
     Active Substance: PALIVIZUMAB
     Indication: Postoperative care
     Dosage: 15 MG/KG, EVERY 28 DAYS
     Route: 030
     Dates: start: 202202
  5. SYNAGIS [Suspect]
     Active Substance: PALIVIZUMAB
     Indication: Atrial septal defect
     Dosage: 15 MG/KG, EVERY 28 DAYS
     Route: 030
     Dates: start: 202202
  6. SYNAGIS [Suspect]
     Active Substance: PALIVIZUMAB
     Indication: Antiviral prophylaxis
     Dosage: 15 MG/KG, EVERY 28 DAYS
     Route: 030
     Dates: start: 202202
  7. SYNAGIS [Suspect]
     Active Substance: PALIVIZUMAB
     Indication: Postoperative care
     Dosage: 50MG/0.5ML
     Route: 030
     Dates: start: 20220811
  8. SYNAGIS [Suspect]
     Active Substance: PALIVIZUMAB
     Indication: Atrial septal defect
     Dosage: 50MG/0.5ML
     Route: 030
     Dates: start: 20220811
  9. SYNAGIS [Suspect]
     Active Substance: PALIVIZUMAB
     Indication: Antiviral prophylaxis
     Dosage: 50MG/0.5ML
     Route: 030
     Dates: start: 20220811

REACTIONS (2)
  - Lactose intolerance [Unknown]
  - Off label use [Not Recovered/Not Resolved]

NARRATIVE: CASE EVENT DATE: 20220101
